FAERS Safety Report 8828657 (Version 1)
Quarter: 2012Q4

REPORT INFORMATION
  Report Type: 
  Country: US (occurrence: US)
  Receive Date: 20121005
  Receipt Date: 20121005
  Transmission Date: 20130627
  Serious: Yes (Other)
  Sender: FDA-Public Use
  Company Number: US-MYLANLABS-2012S1019815

PATIENT
  Age: 52 Year
  Sex: Male

DRUGS (2)
  1. RITONAVIR [Suspect]
     Indication: HIV INFECTION
  2. FLUCONAZOLE [Suspect]
     Indication: PRODUCT USED FOR UNKNOWN INDICATION

REACTIONS (3)
  - Cushing^s syndrome [Unknown]
  - Adrenal suppression [Unknown]
  - Candidiasis [Unknown]
